APPROVED DRUG PRODUCT: AMITRIPTYLINE HYDROCHLORIDE
Active Ingredient: AMITRIPTYLINE HYDROCHLORIDE
Strength: 50MG
Dosage Form/Route: TABLET;ORAL
Application: A087557 | Product #001
Applicant: HALSEY DRUG CO INC
Approved: Mar 5, 1982 | RLD: No | RS: No | Type: DISCN